FAERS Safety Report 21990811 (Version 1)
Quarter: 2023Q1

REPORT INFORMATION
  Report Type: Spontaneous
  Country: US (occurrence: US)
  Receive Date: 20230214
  Receipt Date: 20230214
  Transmission Date: 20230417
  Serious: No
  Sender: FDA-Public Use
  Company Number: Case # 281

PATIENT
  Age: 72 Year
  Sex: Male
  Weight: 79.365 kg

DRUGS (4)
  1. BIVIGAM [Suspect]
     Active Substance: HUMAN IMMUNOGLOBULIN G
     Indication: Blood immunoglobulin G decreased
     Dosage: 30 GRAM, 4W
     Route: 042
     Dates: start: 20211210
  2. PROPRANOLOL [Suspect]
     Active Substance: PROPRANOLOL HYDROCHLORIDE
     Indication: Palpitations
     Dosage: 20 MG; THREE TIMES A WEEK AS NEEDED
     Route: 048
  3. DIPHENHYDRAMINE [Concomitant]
     Active Substance: DIPHENHYDRAMINE
     Indication: Product used for unknown indication
     Dosage: 25 MG, 2 CAPSULES (50 MG) BY MOUTH 30 MINS PRIOR TO INFUSION
     Route: 048
  4. ACETAMINOPHEN [Concomitant]
     Active Substance: ACETAMINOPHEN
     Indication: Product used for unknown indication
     Dosage: 325 MG; TAKE 2 TABLETS (650 MG) BY MOUTH 30 MIN. PRIOR TO INFUSION Q4H PRN
     Route: 048

REACTIONS (3)
  - Heart rate decreased [Unknown]
  - Blood pressure systolic increased [Unknown]
  - Dizziness [Unknown]

NARRATIVE: CASE EVENT DATE: 20220419
